FAERS Safety Report 4971444-4 (Version None)
Quarter: 2006Q2

REPORT INFORMATION
  Report Type: 
  Country: None (occurrence: None)
  Receive Date: 20060411
  Receipt Date: 20060411
  Transmission Date: 20061013
  Serious: Yes (Disabling)
  Sender: FDA-Public Use
  Company Number: None

PATIENT
  Age: 30 Year
  Sex: Female
  Weight: 74.8435 kg

DRUGS (1)
  1. CYTOTEC [Suspect]
     Indication: LABOUR STIMULATION
     Dates: start: 20030401, end: 20030401

REACTIONS (10)
  - ABNORMAL LABOUR [None]
  - ACTIVITIES OF DAILY LIVING IMPAIRED [None]
  - BLADDER PROLAPSE [None]
  - FORCEPS DELIVERY [None]
  - IMPAIRED HEALING [None]
  - INCORRECT DOSE ADMINISTERED [None]
  - OFF LABEL USE [None]
  - UTERINE HYPERTONUS [None]
  - UTERINE PROLAPSE [None]
  - VACUUM EXTRACTOR DELIVERY [None]
